FAERS Safety Report 9827699 (Version 2)
Quarter: 2014Q1

REPORT INFORMATION
  Report Type: Report from Study
  Country: GB (occurrence: GB)
  Receive Date: 20140117
  Receipt Date: 20140117
  Transmission Date: 20141002
  Serious: Yes (Life-Threatening, Hospitalization)
  Sender: FDA-Public Use
  Company Number: GB-CELGENEUS-167-21880-14010491

PATIENT
  Age: 50 Year
  Sex: Female
  Weight: 114.6 kg

DRUGS (37)
  1. REVLIMID [Suspect]
     Indication: CHRONIC LYMPHOCYTIC LEUKAEMIA
     Dosage: 5 MILLIGRAM
     Route: 048
     Dates: start: 20131127, end: 20131230
  2. DEXAMETHASONE [Suspect]
     Indication: CHRONIC LYMPHOCYTIC LEUKAEMIA
     Route: 048
  3. DEXAMETHASONE [Suspect]
     Route: 048
     Dates: start: 20131223, end: 20131226
  4. OFATUMUMAB [Suspect]
     Indication: CHRONIC LYMPHOCYTIC LEUKAEMIA
     Dosage: 300 MILLIGRAM
     Route: 041
     Dates: start: 20131223, end: 20131230
  5. ALLOPURINOL [Concomitant]
     Indication: PROPHYLAXIS
     Dosage: 300 MILLIGRAM
     Route: 048
     Dates: start: 20131015
  6. CO-TRIMOXAZOLE [Concomitant]
     Indication: PRODUCT USED FOR UNKNOWN INDICATION
     Route: 065
  7. CO-TRIMOXAZOLE [Concomitant]
     Dosage: 13056 MILLIGRAM
     Route: 041
     Dates: start: 20140107
  8. ACICLOVIR [Concomitant]
     Indication: PROPHYLAXIS
     Dosage: 800 MILLIGRAM
     Route: 048
  9. ITRACONAZOLE [Concomitant]
     Indication: PRODUCT USED FOR UNKNOWN INDICATION
     Route: 065
  10. LANSOPRAZOLE [Concomitant]
     Indication: PROPHYLAXIS AGAINST GASTROINTESTINAL ULCER
     Dosage: 30 MILLIGRAM
     Route: 048
     Dates: start: 20131111
  11. ALENDRONIC ACID [Concomitant]
     Indication: OSTEOPOROSIS PROPHYLAXIS
     Dosage: 70 MILLIGRAM
     Route: 048
     Dates: start: 20131111
  12. ASPIRINE [Concomitant]
     Indication: THROMBOSIS PROPHYLAXIS
     Dosage: 75 MILLIGRAM
     Route: 048
     Dates: start: 20131111, end: 20131209
  13. IMMUNOGLOBULIN [Concomitant]
     Indication: PRODUCT USED FOR UNKNOWN INDICATION
     Route: 065
  14. GRANULOCYTE COLONY-STIMULATING FACTOR NOS [Concomitant]
     Indication: NEUTROPENIA
     Dosage: 300 MILLIGRAM
     Route: 058
     Dates: start: 20131216, end: 20140101
  15. METFORMIN [Concomitant]
     Indication: DIABETES MELLITUS
     Dosage: 1000 MILLIGRAM
     Route: 048
     Dates: end: 20140105
  16. FLUCONAZOLE [Concomitant]
     Indication: PROPHYLAXIS
     Dosage: 50 MILLIGRAM
     Route: 048
     Dates: start: 20131111
  17. GLIPIZDE [Concomitant]
     Indication: DIABETES MELLITUS
     Dosage: 160 MILLIGRAM
     Route: 048
     Dates: start: 20131209, end: 20140107
  18. AMBISONE [Concomitant]
     Indication: NEUTROPENIC SEPSIS
     Dosage: 340 MILLIGRAM
     Route: 041
     Dates: start: 20140105
  19. VACAMYCIN [Concomitant]
     Indication: NEUTROPENIC SEPSIS
     Dosage: 1 GRAM
     Route: 041
     Dates: start: 20140105
  20. FUROSEMIDE [Concomitant]
     Indication: PROPHYLAXIS
     Route: 041
     Dates: start: 20140106, end: 20140106
  21. FUROSEMIDE [Concomitant]
     Route: 041
     Dates: start: 20140109, end: 20140109
  22. TAMIFLU [Concomitant]
     Indication: INFLUENZA
     Dosage: 150 NANOGRAM
     Route: 065
     Dates: start: 20140108
  23. PREDNISOLONE [Concomitant]
     Indication: PROPHYLAXIS
     Dosage: 40 MILLIGRAM
     Route: 065
     Dates: start: 20140107
  24. HYDROCORTISONE [Concomitant]
     Indication: CARDIOVASCULAR DISORDER
     Route: 041
     Dates: start: 20140108
  25. CHLORHEXIDINE [Concomitant]
     Indication: PROPHYLAXIS
     Route: 061
     Dates: start: 20140109
  26. CELLUVISC [Concomitant]
     Indication: PROPHYLAXIS
     Route: 061
     Dates: start: 20140109
  27. LORAZEPAM [Concomitant]
     Indication: ANXIETY
     Route: 048
     Dates: start: 20140106, end: 20140106
  28. HUMAN ACRADID INSULIN [Concomitant]
     Indication: DIABETES MELLITUS
     Route: 041
     Dates: start: 20140108
  29. ALFENTANIL [Concomitant]
     Indication: SEDATION
     Dosage: 2.52.5MG IN 50MG
     Route: 041
     Dates: start: 20140108
  30. MIDAZOLAM [Concomitant]
     Indication: SEDATION
     Dosage: 50.050MG IN 50ML
     Route: 041
     Dates: start: 20140108, end: 20140108
  31. MIDAZOLAM [Concomitant]
     Dosage: 100.0100MG IN 50ML,0-10ML/HR
     Route: 041
     Dates: start: 20140109
  32. PROPOFOL [Concomitant]
     Indication: SEDATION
     Dosage: 1000.01000MG IN 100ML 0-30ML/HR
     Route: 041
     Dates: start: 20140108
  33. ATRACURIUM [Concomitant]
     Indication: NEUROMUSCULAR BLOCKADE
     Dosage: 500.0500MG IN 50ML 0-10ML/HR
     Route: 041
     Dates: start: 20140109
  34. NORADRENALINE [Concomitant]
     Indication: BLOOD PRESSURE
     Dosage: 20.030MG IN 250ML 0-20ML/HR
     Route: 041
     Dates: start: 20140109
  35. POTASSIUM ACID PHOSPHATE [Concomitant]
     Indication: PRODUCT USED FOR UNKNOWN INDICATION
     Dosage: 40.0MMOLS IN 40ML 6.6ML/HR
     Route: 041
     Dates: start: 20140107, end: 20140107
  36. DEXTROSE [Concomitant]
     Indication: PRODUCT USED FOR UNKNOWN INDICATION
     Dosage: 10.010% 500ML 25ML/HR
     Route: 041
     Dates: start: 20140107
  37. PLASMALYTE [Concomitant]
     Indication: SUPPLEMENTATION THERAPY
     Dosage: 100.0ML/HR
     Route: 041
     Dates: start: 20140108, end: 20140109

REACTIONS (1)
  - Influenza [Not Recovered/Not Resolved]
